FAERS Safety Report 9030400 (Version 2)
Quarter: 2013Q1

REPORT INFORMATION
  Report Type: Spontaneous
  Country: US (occurrence: US)
  Receive Date: 20130122
  Receipt Date: 20130130
  Transmission Date: 20140127
  Serious: No
  Sender: FDA-Public Use
  Company Number: US-VERTEX PHARMACEUTICALS INC.-2013-000835

PATIENT
  Age: 60 None
  Sex: Female
  Weight: 88 kg

DRUGS (5)
  1. INCIVEK [Suspect]
     Indication: HEPATITIS C
     Dosage: 750 MG, TID
     Route: 048
     Dates: start: 20130109
  2. RIBAVIRIN [Suspect]
     Indication: HEPATITIS C
     Dosage: 600 MG, BID
     Route: 048
     Dates: start: 20130109
  3. PEGASYS [Suspect]
     Indication: HEPATITIS C
     Dosage: 180 ?G, WEEK
     Route: 058
     Dates: start: 20130117
  4. CLARITIN [Concomitant]
     Indication: HYPERSENSITIVITY
     Route: 048
  5. PROCARDIA [Concomitant]
     Indication: HYPERTENSION
     Route: 048

REACTIONS (6)
  - Inappropriate schedule of drug administration [Recovered/Resolved]
  - Tremor [Recovered/Resolved]
  - Anxiety [Recovered/Resolved]
  - Decreased appetite [Recovered/Resolved]
  - Lethargy [Not Recovered/Not Resolved]
  - Nausea [Recovered/Resolved]
